FAERS Safety Report 5649786-9 (Version None)
Quarter: 2008Q1

REPORT INFORMATION
  Report Type: 
  Country: None (occurrence: None)
  Receive Date: 20080304
  Receipt Date: 20080221
  Transmission Date: 20080703
  Serious: Yes (Hospitalization)
  Sender: FDA-Public Use
  Company Number: ES-PFIZER INC-2008017025

PATIENT
  Age: 61 Year
  Sex: Male

DRUGS (5)
  1. PREGABALIN [Suspect]
     Route: 048
     Dates: start: 20060317, end: 20060331
  2. AMLODIPINE [Concomitant]
  3. CANDESARTAN CILEXETIL [Concomitant]
  4. ALLOPURINOL [Concomitant]
  5. METAMIZOLE [Concomitant]

REACTIONS (5)
  - ASTHENIA [None]
  - CHOLESTASIS [None]
  - DIZZINESS [None]
  - SOMNOLENCE [None]
  - VISION BLURRED [None]
